FAERS Safety Report 19708266 (Version 2)
Quarter: 2021Q3

REPORT INFORMATION
  Report Type: Spontaneous
  Country: US (occurrence: US)
  Receive Date: 20210816
  Receipt Date: 20210825
  Transmission Date: 20211014
  Serious: Yes (Death, Hospitalization, Other)
  Sender: FDA-Public Use
  Company Number: US-ALEMBIC PHARMACUETICALS LIMITED-2021SCAL000346

PATIENT

DRUGS (2)
  1. BUPROPION HYDROCHLORIDE. [Suspect]
     Active Substance: BUPROPION HYDROCHLORIDE
     Indication: DEPRESSION
     Dosage: 28.2 GRAM
     Route: 065
  2. OXCARBAZEPINE. [Suspect]
     Active Substance: OXCARBAZEPINE
     Indication: DEPRESSION
     Dosage: UNK
     Route: 065

REACTIONS (24)
  - Intentional overdose [Fatal]
  - Circulatory collapse [Fatal]
  - Cardiopulmonary failure [Fatal]
  - Bundle branch block left [Unknown]
  - Hyperhidrosis [Unknown]
  - Hypotension [Unknown]
  - Cardiogenic shock [Fatal]
  - Hypothermia [Unknown]
  - Ventricular hypokinesia [Unknown]
  - Cardiac arrest [Fatal]
  - Toxicity to various agents [Fatal]
  - Mydriasis [Unknown]
  - Electrocardiogram QT prolonged [Unknown]
  - Metabolic acidosis [Unknown]
  - Unresponsive to stimuli [Unknown]
  - Skin warm [Unknown]
  - Ventricular fibrillation [None]
  - Seizure [Unknown]
  - Electrocardiogram QRS complex prolonged [Unknown]
  - Hypertension [Unknown]
  - Shock [Unknown]
  - Mental status changes [Unknown]
  - Tachycardia [Unknown]
  - Ejection fraction decreased [Unknown]
